FAERS Safety Report 20118746 (Version 3)
Quarter: 2022Q1

REPORT INFORMATION
  Report Type: Other
  Country: US (occurrence: None)
  Receive Date: 20211126
  Receipt Date: 20220115
  Transmission Date: 20220423
  Serious: Yes (Other)
  Sender: FDA-Public Use
  Company Number: US-ROCHE-2958985

PATIENT
  Sex: Female

DRUGS (13)
  1. ESBRIET [Suspect]
     Active Substance: PIRFENIDONE
     Indication: Idiopathic pulmonary fibrosis
     Dosage: TAKE 3 TABLET(S) BY MOUTH 3 TIMES A DAY
     Route: 048
  2. ESBRIET [Suspect]
     Active Substance: PIRFENIDONE
     Indication: Cerebrovascular accident
  3. ESBRIET [Suspect]
     Active Substance: PIRFENIDONE
     Indication: Renal cancer
  4. ESBRIET [Suspect]
     Active Substance: PIRFENIDONE
     Indication: Idiopathic pulmonary fibrosis
     Dosage: TAKE 3 CAPSULE BY MOUTH 3 TIMES DAILY
     Route: 048
     Dates: start: 20200213
  5. PROZAC [Concomitant]
     Active Substance: FLUOXETINE HYDROCHLORIDE
     Dosage: TAKE 2 CAPSULES BY MOUTH EVERY MORNING
     Route: 048
     Dates: start: 20191216
  6. ELIQUIS [Concomitant]
     Active Substance: APIXABAN
     Route: 048
     Dates: start: 20191210
  7. WELLBUTRIN SR [Concomitant]
     Active Substance: BUPROPION HYDROCHLORIDE
     Route: 048
     Dates: start: 20191118
  8. DESYREL [Concomitant]
     Active Substance: TRAZODONE HYDROCHLORIDE
     Route: 048
     Dates: start: 20190521
  9. LIPITOR [Concomitant]
     Active Substance: ATORVASTATIN CALCIUM
     Route: 048
     Dates: start: 20190423
  10. IRON [Concomitant]
     Active Substance: IRON
     Route: 048
     Dates: start: 20190227
  11. DILTIAZEM [Concomitant]
     Active Substance: DILTIAZEM
     Route: 048
     Dates: start: 20180719
  12. FISH OIL [Concomitant]
     Active Substance: FISH OIL
     Route: 048
  13. ESTER C (UNITED STATES) [Concomitant]
     Route: 048

REACTIONS (5)
  - Cardiac failure [Unknown]
  - Atrial fibrillation [Unknown]
  - Dementia [Unknown]
  - Asthenia [Unknown]
  - Fall [Unknown]
